FAERS Safety Report 8008696-2 (Version None)
Quarter: 2011Q4

REPORT INFORMATION
  Report Type: 
  Country: None (occurrence: None)
  Receive Date: 20111227
  Receipt Date: 20111212
  Transmission Date: 20120403
  Serious: Yes (Other)
  Sender: FDA-Public Use
  Company Number: US-MERCK-1112USA01497

PATIENT
  Age: 57 Year
  Sex: Female

DRUGS (10)
  1. COZAAR [Suspect]
     Indication: BLOOD PRESSURE
     Route: 048
     Dates: start: 20101201, end: 20101201
  2. VITAMIN D (UNSPECIFIED) [Concomitant]
     Route: 065
  3. COZAAR [Suspect]
     Route: 048
     Dates: end: 20100101
  4. COZAAR [Suspect]
     Route: 048
     Dates: start: 20100101, end: 20110101
  5. METOPROLOL TARTRATE [Concomitant]
     Route: 065
  6. HYDROCHLOROTHIAZIDE [Concomitant]
     Route: 048
  7. COZAAR [Suspect]
     Route: 048
     Dates: start: 20110101, end: 20110101
  8. ASPIRIN [Concomitant]
     Route: 065
  9. COZAAR [Suspect]
     Route: 048
     Dates: start: 20110101
  10. ESTRADIOL [Concomitant]
     Route: 065

REACTIONS (2)
  - FEELING ABNORMAL [None]
  - PALPITATIONS [None]
